FAERS Safety Report 5955837-4 (Version None)
Quarter: 2008Q4

REPORT INFORMATION
  Report Type: 
  Country: None (occurrence: None)
  Receive Date: 20081117
  Receipt Date: 20081105
  Transmission Date: 20090506
  Serious: Yes (Hospitalization)
  Sender: FDA-Public Use
  Company Number: FR-PFIZER INC-2008094183

PATIENT
  Sex: Male
  Weight: 115 kg

DRUGS (4)
  1. ALDACTONE [Suspect]
     Route: 048
     Dates: start: 20080701, end: 20080825
  2. DICLOFENAC SODIUM [Suspect]
     Indication: BACK PAIN
     Route: 048
  3. METFORMIN HCL [Concomitant]
  4. COZAAR [Concomitant]

REACTIONS (2)
  - HAEMATEMESIS [None]
  - HYPOCHROMIC ANAEMIA [None]
